FAERS Safety Report 4816015-5 (Version None)
Quarter: 2005Q4

REPORT INFORMATION
  Report Type: 
  Country: None (occurrence: None)
  Receive Date: 20051026
  Receipt Date: 20051013
  Transmission Date: 20060501
  Serious: Yes (Other)
  Sender: FDA-Public Use
  Company Number: GXKR2005US01818

PATIENT

DRUGS (1)
  1. CEFTRIAXONE [Suspect]
     Indication: LYME DISEASE
     Dosage: INFUSION
     Dates: start: 20051006

REACTIONS (3)
  - ABDOMINAL PAIN [None]
  - ANXIETY [None]
  - PANIC ATTACK [None]
